FAERS Safety Report 22045411 (Version 4)
Quarter: 2023Q2

REPORT INFORMATION
  Report Type: Spontaneous
  Country: DE (occurrence: DE)
  Receive Date: 20230228
  Receipt Date: 20230512
  Transmission Date: 20230722
  Serious: Yes (Life-Threatening, Hospitalization)
  Sender: FDA-Public Use
  Company Number: DE-SAMSUNG BIOEPIS-SB-2023-04044

PATIENT
  Age: 74 Year
  Sex: Female
  Weight: 65.3 kg

DRUGS (24)
  1. CARBOPLATIN [Suspect]
     Active Substance: CARBOPLATIN
     Indication: Breast cancer female
     Dosage: DOSE: 5 AUC, EVERY 21 DAYS?FORM OF ADMIN. UNKNOWN (OTHER/UNSPECIFIED)?ROUTE OF ADMIN. INTRAVENOUS (N
     Dates: start: 20221122, end: 20230418
  2. PACLITAXEL [Suspect]
     Active Substance: PACLITAXEL
     Indication: Breast cancer female
     Dosage: UNIT DOSE - 80 MG/M2?FORM OF ADMIN. FORM OF ADMIN.?ROUTE OF ADMIN. INTRAVENOUS (NOT OTHERWISE SPECIF
     Dates: start: 20221122, end: 20230418
  3. PACLITAXEL [Suspect]
     Active Substance: PACLITAXEL
     Dosage: UNIT DOSE ; 60 MG/M2?FORM OF ADMIN. UNKNOWN?ROUTE OF ADMIN. INTRAVENOUS (NOT OTHERWISE SPECIFIED) (
     Route: 042
     Dates: start: 20221122, end: 20230313
  4. PERTUZUMAB [Suspect]
     Active Substance: PERTUZUMAB
     Indication: Breast cancer female
     Dosage: EVERY 21 DAYS?FORM OF ADMIN. UNKNOWN (OTHER/UNSPECIFIED)?ROUTE OF ADMIN.INTRAVENOUS (NOT OTHERWISE S
     Dates: start: 20221122, end: 20230418
  5. ONTRUZANT [Suspect]
     Active Substance: TRASTUZUMAB-DTTB
     Indication: Breast cancer female
     Dosage: UNIT DOSE - 6 MG/KG?FORM OF ADMIN. UNKNOWN?ROUTE OF ADMIN. INTRAVENOUS (NOT OTHERWISE SPECIFIED) ( I
     Dates: start: 20221122, end: 20230418
  6. LEVOTHYROXINE SODIUM [Concomitant]
     Active Substance: LEVOTHYROXINE SODIUM
     Indication: Hypothyroidism
     Dosage: FORM OF ADMIN. UNKNOWN (OTHER/UNSPECIFIED)?ROUTE OF ADMIN. ORAL ( ORA )
     Dates: start: 20080630
  7. CHOLECALCIFEROL [Concomitant]
     Active Substance: CHOLECALCIFEROL
     Indication: Supplementation therapy
     Dosage: IE?FORM OF ADMIN. UNKNOWN (OTHER/UNSPECIFIED)?ROUTE OF ADMIN. ORAL ( ORA )
  8. CHOLECALCIFEROL [Concomitant]
     Active Substance: CHOLECALCIFEROL
     Dosage: IE
  9. CHOLECALCIFEROL [Concomitant]
     Active Substance: CHOLECALCIFEROL
     Dosage: IE
  10. ATORVASTATIN [Concomitant]
     Active Substance: ATORVASTATIN
     Indication: Hypercholesterolaemia
     Dosage: FORM OF ADMIN. UNKNOWN (OTHER/UNSPECIFIED)?ROUTE OF ADMIN. ORAL ( ORA )
     Dates: start: 20201215
  11. VITAMIN B COMPLEX [Concomitant]
     Active Substance: CYANOCOBALAMIN\DEXPANTHENOL\NIACINAMIDE\PYRIDOXINE HYDROCHLORIDE\RIBOFLAVIN 5^-PHOSPHATE SODIUM\THIA
     Indication: Supplementation therapy
     Dosage: DOSE: UNKNOWN?FORM OF ADMIN. UNKNOWN (OTHER/UNSPECIFIED)?ROUTE OF ADMIN. ORAL ( ORA )
     Dates: start: 20070630
  12. CANDESARTAN [Concomitant]
     Active Substance: CANDESARTAN
     Indication: Hypertension
     Dosage: FORM OF ADMIN. UNKNOWN (OTHER/UNSPECIFIED)?ROUTE OF ADMIN. ORAL ( ORA )
     Dates: start: 20181015
  13. VITAMIN D NOS [Concomitant]
     Active Substance: VITAMIN D NOS
     Indication: Supplementation therapy
     Dosage: DOSE: 20000 IE?FORM OF ADMIN.UNKNOWN (OTHER/UNSPECIFIED)?ROUTE OF ADMIN. ORAL ( ORA )
  14. VITAMIN D NOS [Concomitant]
     Active Substance: VITAMIN D NOS
     Dosage: DOSE: 20000 IE
  15. VITAMIN D NOS [Concomitant]
     Active Substance: VITAMIN D NOS
     Dosage: DOSE: UNKNOWN
  16. OMEPRAZOLE [Concomitant]
     Active Substance: OMEPRAZOLE
     Indication: Gastrooesophageal reflux disease
     Dosage: FREQUENCY: OTHER?FORM OF ADMIN. UNKNOWN (OTHER/UNSPECIFIED)?ROUTE OF ADMIN. ORAL ( ORA )
     Dates: start: 20150630
  17. ASPIRIN [Concomitant]
     Active Substance: ASPIRIN
     Indication: Thrombosis prophylaxis
     Dosage: FORM OF ADMIN. UNKNOWN (OTHER/UNSPECIFIED)?ROUTE OF ADMIN. ORAL ( ORA )
  18. ASPIRIN [Concomitant]
     Active Substance: ASPIRIN
  19. ASPIRIN [Concomitant]
     Active Substance: ASPIRIN
     Route: 048
  20. CANDESARTAN CILEXETIL [Concomitant]
     Active Substance: CANDESARTAN CILEXETIL
     Indication: Hypertension
     Dosage: FORM OF ADMIN. UNKNOWN (OTHER/UNSPECIFIED)?ROUTE OF ADMIN. ORAL ( ORA )
     Dates: start: 20181015
  21. CANDESARTAN CILEXETIL [Concomitant]
     Active Substance: CANDESARTAN CILEXETIL
     Route: 048
  22. ASPIRIN [Concomitant]
     Active Substance: ASPIRIN
     Indication: Anticoagulant therapy
     Dosage: FORM OF ADMIN. UNKNOWN (OTHER/UNSPECIFIED)?ROUTE OF ADMIN. ORAL ( ORA )
  23. ASPIRIN [Concomitant]
     Active Substance: ASPIRIN
  24. ASPIRIN [Concomitant]
     Active Substance: ASPIRIN
     Route: 048

REACTIONS (6)
  - General physical health deterioration [Recovering/Resolving]
  - Neutropenia [Recovered/Resolved]
  - Anaemia [Not Recovered/Not Resolved]
  - Thrombocytopenia [Not Recovered/Not Resolved]
  - Hypomagnesaemia [Recovering/Resolving]
  - Thrombocytopenia [Not Recovered/Not Resolved]

NARRATIVE: CASE EVENT DATE: 20230202
